FAERS Safety Report 8047604-5 (Version None)
Quarter: 2012Q1

REPORT INFORMATION
  Report Type: 
  Country: None (occurrence: None)
  Receive Date: 20120116
  Receipt Date: 20120110
  Transmission Date: 20120608
  Serious: Yes (Hospitalization)
  Sender: FDA-Public Use
  Company Number: US-GLAXOSMITHKLINE-B0705712A

PATIENT
  Age: 51 Year
  Sex: Female
  Weight: 93.2 kg

DRUGS (14)
  1. GLYBURIDE [Concomitant]
  2. PROTONIX [Concomitant]
  3. NORVASC [Concomitant]
  4. ZOCOR [Concomitant]
  5. COMBIVENT [Concomitant]
  6. DIOVAN HCT [Concomitant]
  7. IMITREX [Concomitant]
  8. GLUCOPHAGE [Concomitant]
  9. ADVAIR DISKUS 100/50 [Concomitant]
  10. ZOLOFT [Concomitant]
  11. AVANDIA [Suspect]
     Indication: DIABETES MELLITUS
     Dosage: 4MG PER DAY
     Route: 048
     Dates: start: 20040101, end: 20100101
  12. CRESTOR [Concomitant]
  13. LOVAZA [Concomitant]
  14. CARBAMAZEPINE [Concomitant]

REACTIONS (2)
  - CARDIOVASCULAR DISORDER [None]
  - TRANSIENT ISCHAEMIC ATTACK [None]
